FAERS Safety Report 23885816 (Version 1)
Quarter: 2024Q2

REPORT INFORMATION
  Report Type: Spontaneous
  Country: FR (occurrence: None)
  Receive Date: 20240522
  Receipt Date: 20240522
  Transmission Date: 20240715
  Serious: Yes (Life-Threatening, Hospitalization)
  Sender: FDA-Public Use
  Company Number: 2024A119365

PATIENT
  Age: 71 Year
  Sex: Male
  Weight: 93.5 kg

DRUGS (10)
  1. QUETIAPINE [Interacting]
     Active Substance: QUETIAPINE
     Indication: Schizophrenia
     Dosage: 1.0.1400.0MG UNKNOWN
     Route: 048
     Dates: end: 20240401
  2. AMLODIPINE [Interacting]
     Active Substance: AMLODIPINE BESYLATE
     Indication: Hypertension
     Dosage: 5.0MG UNKNOWN
     Route: 048
     Dates: start: 20240401
  3. PERINDOPRIL [Interacting]
     Active Substance: PERINDOPRIL
     Indication: Hypertension
     Dosage: 1.0.0
     Route: 048
     Dates: end: 20240401
  4. ZUCLOPENTHIXOL [Interacting]
     Active Substance: ZUCLOPENTHIXOL
     Indication: Schizophrenia
     Dosage: LAST TAKEN ON 24/033.0DF UNKNOWN
     Route: 030
  5. FUROSEMIDE [Interacting]
     Active Substance: FUROSEMIDE
     Indication: Hypertension
     Dosage: 2.0.0
     Route: 048
     Dates: end: 20240401
  6. ALFUZOSIN [Interacting]
     Active Substance: ALFUZOSIN
     Indication: Benign prostatic hyperplasia
     Dosage: 0.0.1
     Route: 048
     Dates: end: 20240401
  7. HALOPERIDOL [Interacting]
     Active Substance: HALOPERIDOL
     Indication: Schizophrenia
     Dosage: 1.0.2 UNKNOWN
     Route: 048
     Dates: end: 20240401
  8. BISOPROLOL [Interacting]
     Active Substance: BISOPROLOL\BISOPROLOL FUMARATE
     Indication: Hypertension
     Dosage: 1.0.0
     Route: 048
     Dates: end: 20240401
  9. CHOLECALCIFEROL [Concomitant]
     Active Substance: CHOLECALCIFEROL
  10. TRIHEXYPHENIDYL LP [Concomitant]

REACTIONS (11)
  - Hypotension [Recovered/Resolved]
  - Drug interaction [Recovered/Resolved]
  - Somnolence [Unknown]
  - Hyperleukocytosis [Unknown]
  - Staphylococcal infection [Unknown]
  - Enterococcal infection [Unknown]
  - Acinetobacter infection [Unknown]
  - Aerococcus urinae infection [Unknown]
  - Haematuria [Unknown]
  - General physical health deterioration [Unknown]
  - Abdominal pain lower [Unknown]

NARRATIVE: CASE EVENT DATE: 20240401
